FAERS Safety Report 13388702 (Version 1)
Quarter: 2017Q1

REPORT INFORMATION
  Report Type: Other
  Country: US (occurrence: US)
  Receive Date: 20170330
  Receipt Date: 20170330
  Transmission Date: 20170429
  Serious: Yes (Other)
  Sender: FDA-Public Use
  Company Number: US-COL_26161_2017

PATIENT
  Age: 54 Year
  Sex: Female

DRUGS (1)
  1. COLGATE TOTAL DAILY REPAIR FRESH MINT [Suspect]
     Active Substance: SODIUM FLUORIDE
     Indication: TOOTH INJURY
     Dosage: CAPFUL/ONCE/
     Route: 048
     Dates: start: 20170313, end: 20170313

REACTIONS (5)
  - Throat tightness [Recovered/Resolved]
  - Swollen tongue [Recovered/Resolved]
  - Hypersensitivity [Recovered/Resolved]
  - Blood pressure decreased [Recovered/Resolved]
  - Lip swelling [Recovered/Resolved]

NARRATIVE: CASE EVENT DATE: 20170313
